FAERS Safety Report 8512668-9 (Version None)
Quarter: 2012Q3

REPORT INFORMATION
  Report Type: 
  Country: None (occurrence: None)
  Receive Date: 20120716
  Receipt Date: 20120712
  Transmission Date: 20120928
  Serious: Yes (Other)
  Sender: FDA-Public Use
  Company Number: US-PFIZER INC-2012096730

PATIENT
  Sex: Female

DRUGS (5)
  1. XANAX [Concomitant]
  2. LOPID [Concomitant]
  3. EFFEXOR XR [Suspect]
     Dosage: 3 DF (75 UNKNOWN UNIT), 1X/DAY
  4. METFORMIN [Concomitant]
  5. MOBIC [Concomitant]

REACTIONS (2)
  - DEPRESSION [None]
  - BACK INJURY [None]
